FAERS Safety Report 18173387 (Version 1)
Quarter: 2020Q3

REPORT INFORMATION
  Report Type: Spontaneous
  Country: JP (occurrence: JP)
  Receive Date: 20200819
  Receipt Date: 20200819
  Transmission Date: 20201103
  Serious: Yes (Other)
  Sender: FDA-Public Use
  Company Number: JP-SA-2020SA189874

PATIENT

DRUGS (18)
  1. IRINOTECAN [Suspect]
     Active Substance: IRINOTECAN
     Indication: RECTAL CANCER
     Dosage: 223 MG, QCY
     Dates: start: 201802
  2. FLUOROURACIL. [Concomitant]
     Active Substance: FLUOROURACIL
     Indication: RECTAL CANCER
     Dosage: 595 MG, RAPID
     Dates: start: 201802
  3. FLUOROURACIL. [Concomitant]
     Active Substance: FLUOROURACIL
     Dosage: 3620 MG, QCY(CONTINUOUS)
     Dates: start: 201506
  4. OXALIPLATIN. [Suspect]
     Active Substance: OXALIPLATIN
     Indication: RECTAL CANCER
     Dosage: 100 MG
     Dates: start: 201706
  5. PREGABALIN. [Concomitant]
     Active Substance: PREGABALIN
     Indication: SPINAL OSTEOARTHRITIS
     Dosage: UNK
     Route: 048
  6. PANITUMUMAB [Concomitant]
     Active Substance: PANITUMUMAB
     Indication: METASTASES TO LIVER
     Dosage: 280 MG
     Dates: start: 201706
  7. FLUOROURACIL. [Concomitant]
     Active Substance: FLUOROURACIL
     Indication: METASTASES TO LIVER
     Dosage: 3570 MG, CONTINUOUS
     Dates: start: 201802
  8. PANITUMUMAB [Concomitant]
     Active Substance: PANITUMUMAB
     Dosage: 304 MG, QCY
     Dates: start: 201506
  9. FLUOROURACIL. [Concomitant]
     Active Substance: FLUOROURACIL
     Dosage: 3499 MG, SUSTAINED
     Dates: start: 201706
  10. IRINOTECAN [Suspect]
     Active Substance: IRINOTECAN
     Indication: METASTASES TO LIVER
  11. OXALIPLATIN. [Suspect]
     Active Substance: OXALIPLATIN
     Indication: METASTASES TO LIVER
     Dosage: 123 MG
     Dates: start: 201706
  12. FLUOROURACIL. [Concomitant]
     Active Substance: FLUOROURACIL
     Dosage: 604 MG, QCY(RAPID)
     Dates: start: 201506
  13. OXALIPLATIN. [Suspect]
     Active Substance: OXALIPLATIN
     Dosage: 90 MG, QCY
     Dates: start: 201506
  14. CALCIUM LEVOFOLINATE [Concomitant]
     Active Substance: LEVOLEUCOVORIN CALCIUM
     Indication: METASTASES TO LIVER
     Dosage: 297 MG, QCY
     Dates: start: 201802
  15. CALCIUM LEVOFOLINATE [Concomitant]
     Active Substance: LEVOLEUCOVORIN CALCIUM
     Dosage: 302 MG, QCY
     Dates: start: 201506
  16. PANITUMUMAB [Concomitant]
     Active Substance: PANITUMUMAB
     Indication: RECTAL CANCER
     Dosage: 294 MG
     Dates: start: 201802
  17. FLUOROURACIL. [Concomitant]
     Active Substance: FLUOROURACIL
     Dosage: 583 MG, RAPID
     Dates: start: 201706
  18. CALCIUM LEVOFOLINATE [Concomitant]
     Active Substance: LEVOLEUCOVORIN CALCIUM
     Indication: RECTAL CANCER
     Dosage: 291 MG, QCY
     Dates: start: 201706

REACTIONS (4)
  - Ascites [Not Recovered/Not Resolved]
  - Malnutrition [Not Recovered/Not Resolved]
  - Neuropathy peripheral [Recovering/Resolving]
  - Pleural effusion [Not Recovered/Not Resolved]
